FAERS Safety Report 13201255 (Version 1)
Quarter: 2017Q1

REPORT INFORMATION
  Report Type: Spontaneous
  Country: US (occurrence: US)
  Receive Date: 20170208
  Receipt Date: 20170208
  Transmission Date: 20170428
  Serious: No
  Sender: FDA-Public Use
  Company Number: US-AMGEN-USASP2016062228

PATIENT
  Age: 71 Year
  Sex: Female

DRUGS (1)
  1. NEULASTA [Suspect]
     Active Substance: PEGFILGRASTIM
     Indication: NEUTROPENIA
     Dosage: UNK
     Route: 065

REACTIONS (6)
  - Application site bruise [Unknown]
  - Device issue [Unknown]
  - Application site pain [Unknown]
  - Application site erythema [Unknown]
  - Application site discolouration [Unknown]
  - Incorrect dose administered [Unknown]
